FAERS Safety Report 10131669 (Version 1)
Quarter: 2014Q2

REPORT INFORMATION
  Report Type: Spontaneous
  Country: GB (occurrence: GB)
  Receive Date: 20140428
  Receipt Date: 20140428
  Transmission Date: 20141212
  Serious: Yes (Disabling)
  Sender: FDA-Public Use
  Company Number: GB-PFIZER INC-2014114886

PATIENT
  Age: 43 Year
  Sex: Female

DRUGS (1)
  1. DEPO-MEDRONE [Suspect]
     Indication: ARTHROPATHY
     Dosage: 40 MG, UNK
     Route: 051

REACTIONS (2)
  - Drug administration error [Unknown]
  - Monoplegia [Unknown]
